FAERS Safety Report 24355562 (Version 1)
Quarter: 2024Q3

REPORT INFORMATION
  Report Type: Spontaneous
  Country: CA (occurrence: CA)
  Receive Date: 20240924
  Receipt Date: 20240924
  Transmission Date: 20241017
  Serious: Yes (Hospitalization, Other)
  Sender: NOVO NORDISK
  Company Number: CA-NOVOPROD-1284746

PATIENT

DRUGS (1)
  1. OZEMPIC [Suspect]
     Active Substance: SEMAGLUTIDE
     Indication: Product used for unknown indication
     Dosage: UNK

REACTIONS (9)
  - Gallbladder obstruction [Unknown]
  - Pancreatic duct dilatation [Unknown]
  - Biliary dilatation [Unknown]
  - Intestinal obstruction [Unknown]
  - Renal disorder [Unknown]
  - Vision blurred [Unknown]
  - Dehydration [Unknown]
  - Cholelithiasis [Unknown]
  - Constipation [Unknown]
